FAERS Safety Report 12075718 (Version 1)
Quarter: 2016Q1

REPORT INFORMATION
  Report Type: Report from Study
  Country: US (occurrence: US)
  Receive Date: 20160214
  Receipt Date: 20160214
  Transmission Date: 20160526
  Serious: Yes (Other)
  Sender: FDA-Public Use
  Company Number: US-AMGEN-USASL2016014949

PATIENT
  Age: 64 Year
  Sex: Female

DRUGS (1)
  1. ENBREL [Suspect]
     Active Substance: ETANERCEPT
     Indication: RHEUMATOID ARTHRITIS
     Dosage: UNK UNK, QWK
     Route: 065
     Dates: end: 201512

REACTIONS (5)
  - Rheumatoid arthritis [Unknown]
  - Drug effect incomplete [Unknown]
  - Dyspnoea [Unknown]
  - Nasal obstruction [Unknown]
  - Sinus disorder [Unknown]
